FAERS Safety Report 5041567-2 (Version None)
Quarter: 2006Q2

REPORT INFORMATION
  Report Type: 
  Country: None (occurrence: None)
  Receive Date: 20060601
  Receipt Date: 20060328
  Transmission Date: 20061013
  Serious: No
  Sender: FDA-Public Use
  Company Number: 2006PV011098

PATIENT
  Age: 60 Year
  Sex: Female
  Weight: 71.2147 kg

DRUGS (4)
  1. BYETTA [Suspect]
     Indication: DIABETES MELLITUS NON-INSULIN-DEPENDENT
     Dosage: 5 MCG; BID; SC
     Route: 058
     Dates: start: 20060324
  2. PRANDID ^NOVO NORDISK^ [Concomitant]
  3. GLUCOPHAGE [Concomitant]
  4. AVANDIA [Concomitant]

REACTIONS (3)
  - BLOOD GLUCOSE FLUCTUATION [None]
  - BLOOD GLUCOSE INCREASED [None]
  - INJECTION SITE PAIN [None]
